FAERS Safety Report 24196561 (Version 1)
Quarter: 2024Q3

REPORT INFORMATION
  Report Type: Spontaneous
  Country: FR (occurrence: FR)
  Receive Date: 20240810
  Receipt Date: 20240810
  Transmission Date: 20241017
  Serious: Yes (Hospitalization)
  Sender: ROCHE
  Company Number: None

PATIENT
  Age: 81 Year
  Sex: Male

DRUGS (4)
  1. TOCILIZUMAB [Suspect]
     Active Substance: TOCILIZUMAB
     Indication: Polymyalgia rheumatica
     Dosage: 8 MG/KG OR 580 MG/4 WEEK
     Route: 042
     Dates: start: 20240327, end: 20240521
  2. RIMIFON [Suspect]
     Active Substance: ISONIAZID
     Indication: Antibiotic prophylaxis
     Dosage: 300 MG/DAY
     Route: 048
     Dates: start: 20240607, end: 20240618
  3. ISONIAZID\RIFAMPIN [Suspect]
     Active Substance: ISONIAZID\RIFAMPIN
     Indication: Antibiotic prophylaxis
     Dosage: 2 TABLETS/DAY
     Route: 048
     Dates: start: 20240416, end: 20240607
  4. DOLIPRANE 500 mg, comprim? orodispersible [Concomitant]
     Indication: Pain
     Dosage: IF PAIN, 1G/TAKE WITHOUT EXCEEDING 3 GRAMS PER 24 HOURS
     Route: 048
     Dates: start: 2023, end: 20240618

REACTIONS (2)
  - Cholestasis [Recovered/Resolved]
  - Hepatocellular injury [Recovering/Resolving]

NARRATIVE: CASE EVENT DATE: 20240607
